FAERS Safety Report 6472185-7 (Version None)
Quarter: 2009Q4

REPORT INFORMATION
  Report Type: 
  Country: None (occurrence: None)
  Receive Date: 20091201
  Receipt Date: 20091125
  Transmission Date: 20100525
  Serious: Yes (Death)
  Sender: FDA-Public Use
  Company Number: 2009029274

PATIENT
  Age: 60 Year
  Sex: Female

DRUGS (10)
  1. TRISENOX [Suspect]
     Indication: ACUTE MYELOID LEUKAEMIA
     Dosage: INTRAVENOUS DRIP
     Route: 041
     Dates: start: 20090819, end: 20090831
  2. TRISENOX [Suspect]
     Indication: MYELODYSPLASTIC SYNDROME
     Dosage: INTRAVENOUS DRIP
     Route: 041
     Dates: start: 20090819, end: 20090831
  3. ATRA (TRETINOIN) [Suspect]
     Indication: ACUTE MYELOID LEUKAEMIA
     Dates: start: 20090819, end: 20090831
  4. ATRA (TRETINOIN) [Suspect]
     Indication: MYELODYSPLASTIC SYNDROME
     Dates: start: 20090819, end: 20090831
  5. MYLOTARG [Suspect]
     Indication: ACUTE MYELOID LEUKAEMIA
     Dates: start: 20090819, end: 20090831
  6. MYLOTARG [Suspect]
     Indication: MYELODYSPLASTIC SYNDROME
     Dates: start: 20090819, end: 20090831
  7. METFORMIN HCL [Concomitant]
  8. EZETIMIBE [Concomitant]
  9. GLICLAZIDE (GLICLAZIDE) [Concomitant]
  10. BISOPLOLOL (BISPROLOL) [Concomitant]

REACTIONS (1)
  - CARDIAC ARREST [None]
